FAERS Safety Report 12722351 (Version 1)
Quarter: 2016Q3

REPORT INFORMATION
  Report Type: Other
  Country: US (occurrence: US)
  Receive Date: 20160907
  Receipt Date: 20160907
  Transmission Date: 20161109
  Serious: Yes (Other)
  Sender: FDA-Public Use
  Company Number: US-THE MENTHOLATUM COMPANY-1057143

PATIENT

DRUGS (1)
  1. OXY DAILY DEFENSE CLEANSING PADS [Suspect]
     Active Substance: SALICYLIC ACID
     Route: 061
     Dates: start: 20160821, end: 20160821

REACTIONS (1)
  - Application site rash [Recovering/Resolving]

NARRATIVE: CASE EVENT DATE: 20160821
